FAERS Safety Report 16434815 (Version 1)
Quarter: 2019Q2

REPORT INFORMATION
  Report Type: Spontaneous
  Country: US (occurrence: US)
  Receive Date: 20190614
  Receipt Date: 20190614
  Transmission Date: 20190711
  Serious: No
  Sender: FDA-Public Use
  Company Number: US-JNJFOC-20190601145

PATIENT
  Sex: Male
  Weight: 63.5 kg

DRUGS (4)
  1. DURAGESIC [Suspect]
     Active Substance: FENTANYL
     Indication: BACK PAIN
     Route: 048
  2. KEPPRA [Concomitant]
     Active Substance: LEVETIRACETAM
     Indication: SEIZURE
     Route: 065
  3. DURAGESIC [Suspect]
     Active Substance: FENTANYL
     Indication: BACK PAIN
     Route: 062
  4. SPIRIVA [Concomitant]
     Active Substance: TIOTROPIUM BROMIDE MONOHYDRATE
     Indication: ASTHMA
     Route: 055

REACTIONS (12)
  - Intentional overdose [Recovered/Resolved]
  - Inappropriate schedule of product administration [Unknown]
  - Lethargy [Recovered/Resolved]
  - Therapeutic product effect decreased [Unknown]
  - Asthenia [Recovered/Resolved]
  - Intentional product misuse [Not Recovered/Not Resolved]
  - Product formulation issue [Unknown]
  - Feeling abnormal [Recovered/Resolved]
  - Product quality issue [Unknown]
  - Product identification number issue [Unknown]
  - Extra dose administered [Unknown]
  - Product dose omission [Unknown]
